FAERS Safety Report 5086422-7 (Version None)
Quarter: 2006Q3

REPORT INFORMATION
  Report Type: 
  Country: None (occurrence: None)
  Receive Date: 20060823
  Receipt Date: 20060811
  Transmission Date: 20061208
  Serious: Yes (Other)
  Sender: FDA-Public Use
  Company Number: DE-JNJFOC-20060705265

PATIENT
  Sex: Female
  Weight: 67.8 kg

DRUGS (2)
  1. RISPERDAL [Suspect]
     Indication: SCHIZOPHRENIA, PARANOID TYPE
     Route: 048
     Dates: start: 20060705, end: 20060729
  2. TAVOR [Concomitant]
     Indication: RESTLESSNESS
     Route: 048
     Dates: start: 20060705, end: 20060719

REACTIONS (1)
  - BLOOD PROLACTIN INCREASED [None]
